FAERS Safety Report 17127561 (Version 1)
Quarter: 2019Q4

REPORT INFORMATION
  Report Type: Spontaneous
  Country: US (occurrence: US)
  Receive Date: 20191206
  Receipt Date: 20191206
  Transmission Date: 20200122
  Serious: Yes (Disabling)
  Sender: FDA-Public Use
  Company Number: None

PATIENT
  Age: 61 Year
  Sex: Female
  Weight: 60.75 kg

DRUGS (3)
  1. OFLOXACIN OPHTHALMIC [Suspect]
     Active Substance: OFLOXACIN
     Indication: INFECTION
     Dosage: ?          QUANTITY:1 DROP(S);?
     Route: 047
     Dates: start: 20191129, end: 20191205
  2. VIVELLE PATCH .0375 [Concomitant]
  3. WOMENS MULTI [Concomitant]

REACTIONS (8)
  - Pruritus [None]
  - Anxiety [None]
  - Insomnia [None]
  - Headache [None]
  - Heart rate increased [None]
  - Dry eye [None]
  - Pain [None]
  - Vision blurred [None]

NARRATIVE: CASE EVENT DATE: 20191205
